FAERS Safety Report 7724933-3 (Version None)
Quarter: 2011Q3

REPORT INFORMATION
  Report Type: 
  Country: None (occurrence: None)
  Receive Date: 20110901
  Receipt Date: 20110819
  Transmission Date: 20111222
  Serious: Yes (Other)
  Sender: FDA-Public Use
  Company Number: PL-MYLANLABS-2011S1017697

PATIENT
  Age: 69 Year
  Sex: Female

DRUGS (9)
  1. MIRTAZAPINE [Suspect]
     Indication: DEPRESSION
     Dosage: MAXIMUM DAILY DOSE OF 30MG
     Route: 065
  2. REBOXETINE [Suspect]
     Indication: DEPRESSION
     Dosage: MAXIMUM DAILY DOSE OF 4MG
     Route: 065
  3. ESCITALOPRAM [Suspect]
     Indication: DEPRESSION
     Dosage: MAXIMUM DAILY DOSE OF 20MG
     Route: 065
  4. PAROXETINE HCL [Suspect]
     Indication: DEPRESSION
     Dosage: MAXIMUM DAILY DOSE OF 20MG
     Route: 065
  5. SERTRALINE HYDROCHLORIDE [Suspect]
     Indication: DEPRESSION
     Dosage: MAXIMUM DAILY DOSE OF 100MG
     Route: 065
  6. VENLAFAXINE HYDROCHLORIDE [Suspect]
     Indication: DEPRESSION
     Dosage: MAXIMUM DAILY DOSE OF 225MG
     Route: 065
  7. MIRTAZAPINE [Suspect]
     Dosage: MAXIMUM DAILY DOSE OF 45MG
     Route: 065
  8. QUETIAPINE [Suspect]
     Indication: DEPRESSION
     Dosage: MAXIMUM DAILY DOSE OF 100MG
     Route: 065
  9. OLANZAPINE [Suspect]
     Indication: DEPRESSION
     Dosage: MAXIMUM DAILY DOSE OF 5MG
     Route: 065

REACTIONS (1)
  - EMBOLISM VENOUS [None]
